FAERS Safety Report 10970404 (Version 1)
Quarter: 2015Q1

REPORT INFORMATION
  Report Type: Spontaneous
  Country: US (occurrence: None)
  Receive Date: 20150330
  Receipt Date: 20150330
  Transmission Date: 20150721
  Serious: No
  Sender: FDA-Public Use
  Company Number: None

PATIENT
  Age: 77 Year
  Sex: Male
  Weight: 114.8 kg

DRUGS (1)
  1. IOHEXOL [Suspect]
     Active Substance: IOHEXOL
     Indication: ANGIOGRAM
     Route: 042
     Dates: start: 20150316, end: 20150316

REACTIONS (4)
  - Rash erythematous [None]
  - Rash pruritic [None]
  - Accidental overdose [None]
  - Urticaria [None]

NARRATIVE: CASE EVENT DATE: 20150319
